FAERS Safety Report 17325237 (Version 1)
Quarter: 2020Q1

REPORT INFORMATION
  Report Type: Spontaneous
  Country: PT (occurrence: PT)
  Receive Date: 20200127
  Receipt Date: 20200127
  Transmission Date: 20200409
  Serious: Yes (Other)
  Sender: FDA-Public Use
  Company Number: PT-MYLANLABS-2020M1009052

PATIENT
  Age: 21 Year
  Sex: Male

DRUGS (1)
  1. AMIODARONE MYLAN [Suspect]
     Active Substance: AMIODARONE
     Indication: SUPRAVENTRICULAR TACHYCARDIA
     Dosage: 200 MILLIGRAM, QD, PER DAY

REACTIONS (2)
  - Cardiogenic shock [Recovering/Resolving]
  - Hyperthyroidism [Recovering/Resolving]
